FAERS Safety Report 8378231-8 (Version None)
Quarter: 2012Q2

REPORT INFORMATION
  Report Type: 
  Country: None (occurrence: None)
  Receive Date: 20120522
  Receipt Date: 20120515
  Transmission Date: 20120825
  Serious: Yes (Hospitalization)
  Sender: FDA-Public Use
  Company Number: JP-B.I. PHARMACEUTICALS,INC./RIDGEFIELD-2012-BP-06750NB

PATIENT
  Age: 76 Year
  Sex: Male
  Weight: 57.7 kg

DRUGS (10)
  1. CANDESARTAN CILEXETIL [Concomitant]
     Dosage: 4 MG
     Route: 048
     Dates: start: 20120405
  2. PRADAXA [Suspect]
     Indication: CEREBROVASCULAR ACCIDENT PROPHYLAXIS
     Dosage: 220 MG
     Route: 048
     Dates: start: 20110101
  3. VALPROATE SODIUM [Concomitant]
     Route: 065
  4. ATELEC [Concomitant]
     Dosage: 10 MG
     Route: 048
     Dates: start: 20120405
  5. THEOPHYLLINE [Concomitant]
     Dosage: 200 MG
     Route: 048
     Dates: start: 20120405
  6. LASIX [Concomitant]
     Dosage: 10 MG
     Route: 065
  7. CARVEDILOL [Concomitant]
     Dosage: 10 MG
     Route: 065
  8. PHENYTOIN SODIUM CAP [Concomitant]
     Dosage: 300 MG
     Route: 065
  9. BENZMARONE [Concomitant]
     Dosage: 12.5 MG
     Route: 065
  10. RABEPRAZOLE SODIUM [Concomitant]
     Dosage: 10 MG
     Route: 048
     Dates: start: 20120405

REACTIONS (5)
  - ANAEMIA [None]
  - WHITE BLOOD CELL COUNT DECREASED [None]
  - OCCULT BLOOD [None]
  - PLATELET COUNT DECREASED [None]
  - EPILEPSY [None]
